FAERS Safety Report 13273295 (Version 1)
Quarter: 2017Q1

REPORT INFORMATION
  Report Type: Spontaneous
  Country: FR (occurrence: FR)
  Receive Date: 20170227
  Receipt Date: 20170227
  Transmission Date: 20170428
  Serious: Yes (Hospitalization, Other)
  Sender: FDA-Public Use
  Company Number: FR-PFIZER INC-2017080195

PATIENT
  Age: 3 Year
  Sex: Male
  Weight: 13 kg

DRUGS (1)
  1. ADVILMED ENFANTS ET NOURRISSONS [Suspect]
     Active Substance: IBUPROFEN
     Indication: PYREXIA
     Dosage: 1 DF, 1X/DAY
     Route: 048
     Dates: start: 20170125, end: 20170126

REACTIONS (6)
  - Disease complication [Recovered/Resolved]
  - Erysipelas [Recovered/Resolved]
  - Abscess [Recovered/Resolved]
  - Cellulitis [Recovered/Resolved]
  - Weight decreased [Recovered/Resolved]
  - Fistula [Recovered/Resolved]

NARRATIVE: CASE EVENT DATE: 20170126
